FAERS Safety Report 14284861 (Version 1)
Quarter: 2017Q4

REPORT INFORMATION
  Report Type: Spontaneous
  Country: FR (occurrence: FR)
  Receive Date: 20171214
  Receipt Date: 20171214
  Transmission Date: 20180321
  Serious: Yes (Life-Threatening, Hospitalization, Other)
  Sender: FDA-Public Use
  Company Number: FR-MERCK KGAA-2037166

PATIENT
  Age: 65 Year
  Sex: Male

DRUGS (2)
  1. TADENAN [Concomitant]
     Active Substance: PYGEUM
  2. NOVOTHYROX [Suspect]
     Active Substance: LEVOTHYROXINE SODIUM
     Indication: PRODUCT USED FOR UNKNOWN INDICATION
     Dates: start: 20170423, end: 20170723

REACTIONS (43)
  - Anxiety [None]
  - Pain in extremity [None]
  - Speech disorder [None]
  - Headache [None]
  - Hyperhidrosis [None]
  - Muscle spasms [None]
  - Decreased interest [None]
  - Dyspepsia [None]
  - Gait disturbance [None]
  - Weight increased [None]
  - Nausea [None]
  - Hot flush [None]
  - Haematemesis [Recovered/Resolved]
  - Asthenia [None]
  - Pain [None]
  - Sensation of foreign body [None]
  - Vision blurred [None]
  - Irritability [None]
  - Malaise [None]
  - Palpitations [None]
  - Haematochezia [Recovered/Resolved]
  - Angina pectoris [None]
  - Gastrooesophageal reflux disease [None]
  - Dizziness [None]
  - Hypersomnia [None]
  - Chills [None]
  - Nervousness [None]
  - Constipation [None]
  - Disturbance in attention [None]
  - Decreased appetite [None]
  - Emotional distress [None]
  - Myalgia [None]
  - Balance disorder [None]
  - Fatigue [None]
  - Tongue coated [None]
  - Vertigo [None]
  - Social avoidant behaviour [None]
  - Haemorrhagic anaemia [None]
  - Ulcer [None]
  - Amnesia [None]
  - Dysstasia [None]
  - Pallor [None]
  - Insomnia [None]

NARRATIVE: CASE EVENT DATE: 2017
